FAERS Safety Report 6194019-0 (Version None)
Quarter: 2009Q2

REPORT INFORMATION
  Report Type: 
  Country: None (occurrence: None)
  Receive Date: 20090518
  Receipt Date: 20090512
  Transmission Date: 20091009
  Serious: Yes (Life-Threatening, Other)
  Sender: FDA-Public Use
  Company Number: GB-ROXANE LABORATORIES, INC.-2009-RO-00483RO

PATIENT
  Age: 35 Year
  Sex: Female

DRUGS (18)
  1. ONDANSETRON [Suspect]
     Dosage: 4MG
     Route: 042
  2. COCAINE [Suspect]
     Indication: SEPTOPLASTY
     Dosage: 250MG
  3. FENTANYL [Suspect]
     Indication: INDUCTION OF ANAESTHESIA
     Dosage: 100MCG
  4. PROPOFOL [Suspect]
     Indication: INDUCTION OF ANAESTHESIA
     Dosage: 200MG
  5. NITROUS OXIDE [Suspect]
     Indication: MAINTENANCE OF ANAESTHESIA
     Route: 055
  6. OXYGEN [Suspect]
     Indication: MAINTENANCE OF ANAESTHESIA
     Route: 055
  7. SEVOFLURANE [Suspect]
     Indication: MAINTENANCE OF ANAESTHESIA
     Route: 055
  8. LIDOCAINE W/ EPINEPHRINE [Suspect]
     Route: 045
  9. DICLOFENAC [Suspect]
     Dosage: 75MG
     Route: 042
  10. EPINEPHRINE [Concomitant]
     Indication: RESUSCITATION
  11. EPINEPHRINE [Concomitant]
  12. ATROPINE [Concomitant]
     Indication: BRADYCARDIA
  13. POTASSIUM CHLORIDE [Concomitant]
  14. LIDOCAINE [Concomitant]
  15. BICARBONATE [Concomitant]
  16. AMIODARONE [Concomitant]
  17. MAGNESIUM SULFATE [Concomitant]
     Indication: ELECTROLYTE IMBALANCE
     Route: 042
  18. BISOPROLOL [Concomitant]
     Indication: LONG QT SYNDROME

REACTIONS (9)
  - APNOEA [None]
  - ARRHYTHMIA SUPRAVENTRICULAR [None]
  - BRADYCARDIA [None]
  - CARDIAC ARREST [None]
  - ELECTROLYTE IMBALANCE [None]
  - HYPOTENSION [None]
  - LONG QT SYNDROME [None]
  - VENTRICULAR FIBRILLATION [None]
  - VENTRICULAR TACHYCARDIA [None]
